FAERS Safety Report 6763259-1 (Version None)
Quarter: 2010Q2

REPORT INFORMATION
  Report Type: 
  Country: None (occurrence: None)
  Receive Date: 20100610
  Receipt Date: 20100601
  Transmission Date: 20101027
  Serious: Yes (Hospitalization)
  Sender: FDA-Public Use
  Company Number: US-SHIRE-ALL1-2010-03134

PATIENT

DRUGS (1)
  1. FOSRENOL [Suspect]
     Indication: HYPERPHOSPHATAEMIA
     Dosage: TWO 1000MG TABLESTS WITH EACH MEAL AND SNACKS
     Route: 048
     Dates: start: 20080101

REACTIONS (2)
  - PNEUMONIA [None]
  - THERAPY CESSATION [None]
